FAERS Safety Report 5111124-8 (Version None)
Quarter: 2006Q3

REPORT INFORMATION
  Report Type: 
  Country: None (occurrence: None)
  Receive Date: 20060922
  Receipt Date: 20050929
  Transmission Date: 20061208
  Serious: No
  Sender: FDA-Public Use
  Company Number: US-GLAXOSMITHKLINE-A0576329A

PATIENT
  Age: 45 Year
  Sex: Female

DRUGS (8)
  1. ABREVA [Suspect]
     Dates: start: 20050928
  2. AVELOX [Concomitant]
  3. ADVAIR DISKUS 100/50 [Concomitant]
  4. WELLBUTRIN [Concomitant]
  5. BENZONATATE [Concomitant]
  6. OS-CAL [Concomitant]
  7. ADDERALL 30 [Concomitant]
  8. MOUTHWASH [Concomitant]

REACTIONS (3)
  - APPLICATION SITE ERYTHEMA [None]
  - APPLICATION SITE PAIN [None]
  - HERPES SIMPLEX [None]
